FAERS Safety Report 5586044-5 (Version None)
Quarter: 2008Q1

REPORT INFORMATION
  Report Type: 
  Country: None (occurrence: None)
  Receive Date: 20080104
  Receipt Date: 20071220
  Transmission Date: 20080703
  Serious: Yes (Hospitalization, Other)
  Sender: FDA-Public Use
  Company Number: 2007S1000303

PATIENT
  Age: 35 Year
  Sex: Female

DRUGS (1)
  1. ACITRETIN [Suspect]
     Indication: DRUG USE FOR UNKNOWN INDICATION
     Dosage: PO
     Route: 048

REACTIONS (3)
  - CEREBROVASCULAR ACCIDENT [None]
  - CEREBROVASCULAR STENOSIS [None]
  - TRANSIENT ISCHAEMIC ATTACK [None]
